FAERS Safety Report 9059271 (Version 2)
Quarter: 2013Q1

REPORT INFORMATION
  Report Type: Report from Study
  Country: TR (occurrence: TR)
  Receive Date: 20130211
  Receipt Date: 20130221
  Transmission Date: 20140127
  Serious: Yes (Death, Other)
  Sender: FDA-Public Use
  Company Number: TR-ROCHE-1187727

PATIENT
  Sex: 0

DRUGS (1)
  1. BEVACIZUMAB [Suspect]
     Indication: COLORECTAL CANCER METASTATIC
     Route: 065

REACTIONS (8)
  - Sepsis [Fatal]
  - Embolism venous [Unknown]
  - Hypertension [Unknown]
  - Gastrointestinal perforation [Unknown]
  - Proteinuria [Unknown]
  - Impaired healing [Unknown]
  - Wound infection [Unknown]
  - Haemorrhage [Unknown]
